FAERS Safety Report 14664438 (Version 1)
Quarter: 2018Q1

REPORT INFORMATION
  Report Type: Spontaneous
  Country: US (occurrence: US)
  Receive Date: 20180319
  Receipt Date: 20180319
  Transmission Date: 20180509
  Serious: No
  Sender: FDA-Public Use
  Company Number: None

PATIENT
  Age: 46 Year
  Sex: Female

DRUGS (1)
  1. HUMIRA [Suspect]
     Active Substance: ADALIMUMAB
     Indication: COLITIS ULCERATIVE
     Dosage: 4 PEN ON DAY 1, 2 PENS ON DAY 15 THEN AS DIRECTED SUBCUTANEOUSLY
     Route: 058
     Dates: start: 20180217

REACTIONS (3)
  - Eye swelling [None]
  - Sinusitis [None]
  - Rash [None]
